FAERS Safety Report 7418639-8 (Version None)
Quarter: 2011Q2

REPORT INFORMATION
  Report Type: 
  Country: None (occurrence: None)
  Receive Date: 20110415
  Receipt Date: 20101014
  Transmission Date: 20111010
  Serious: Yes (Other)
  Sender: FDA-Public Use
  Company Number: US-BAYER-200944108NA

PATIENT
  Age: 54 Year
  Sex: Female
  Weight: 79.365 kg

DRUGS (4)
  1. YASMIN [Suspect]
     Indication: VAGINAL HAEMORRHAGE
     Dosage: 1 DF (DAILY DOSE), QD, ORAL
     Route: 048
     Dates: start: 20031101, end: 20031201
  2. SINGULAIR [Concomitant]
     Dosage: DAILY DOSE 10 MG
     Route: 048
  3. ADVAIR HFA [Concomitant]
     Dosage: INHALER
  4. ALBUTEROL [Concomitant]
     Dosage: INHALER

REACTIONS (5)
  - MUSCLE SPASMS [None]
  - OEDEMA PERIPHERAL [None]
  - PULMONARY EMBOLISM [None]
  - THROMBOSIS [None]
  - DEEP VEIN THROMBOSIS [None]
